FAERS Safety Report 18674932 (Version 1)
Quarter: 2020Q4

REPORT INFORMATION
  Report Type: Spontaneous
  Country: US (occurrence: US)
  Receive Date: 20201224
  Receipt Date: 20201224
  Transmission Date: 20210114
  Serious: No
  Sender: FDA-Public Use
  Company Number: None

PATIENT
  Sex: Female

DRUGS (1)
  1. BOTOX [Suspect]
     Active Substance: ONABOTULINUMTOXINA
     Indication: MIGRAINE
     Dosage: ?          OTHER STRENGTH:200U/VL ;OTHER DOSE:200 UNITS ;OTHER FREQUENCY:EVERY 3 MONTHS ;?
     Route: 011
     Dates: start: 201312

REACTIONS (3)
  - Swelling of eyelid [None]
  - Facial paralysis [None]
  - Visual impairment [None]
